FAERS Safety Report 18058151 (Version 1)
Quarter: 2020Q3

REPORT INFORMATION
  Report Type: Spontaneous
  Country: US (occurrence: US)
  Receive Date: 20200721
  Receipt Date: 20200721
  Transmission Date: 20201103
  Serious: Yes (Hospitalization)
  Sender: FDA-Public Use
  Company Number: None

PATIENT
  Age: 58 Year
  Sex: Male
  Weight: 92.7 kg

DRUGS (10)
  1. CHOLECALCIFEROL (VITAMIN D) [Concomitant]
  2. PLAVIX [Concomitant]
     Active Substance: CLOPIDOGREL BISULFATE
  3. LISINOPRIL (PRINIVIL, ZESTRIL) [Concomitant]
     Active Substance: LISINOPRIL
  4. GLIPIZIDE (GLUCOTROL) [Concomitant]
  5. LIPITOR [Concomitant]
     Active Substance: ATORVASTATIN CALCIUM
  6. ENTYVIO [Suspect]
     Active Substance: VEDOLIZUMAB
  7. METOPROLOL TARTRATE (LOPRESSOR) [Concomitant]
  8. NITROGLYCERIN (NITROSTAT) [Concomitant]
  9. HYDROCODONE?ACETAMINOPHEN (LORCET, LORTAB, NORCO) [Concomitant]
  10. INSULIN, ISOPHANE (NOVOLIN N) [Concomitant]

REACTIONS (1)
  - Small intestinal obstruction [None]

NARRATIVE: CASE EVENT DATE: 20200201
